FAERS Safety Report 4549498-9 (Version None)
Quarter: 2005Q1

REPORT INFORMATION
  Report Type: 
  Country: None (occurrence: None)
  Receive Date: 20050110
  Receipt Date: 20050110
  Transmission Date: 20050727
  Serious: Yes (Other)
  Sender: FDA-Public Use
  Company Number: None

PATIENT
  Age: 53 Year
  Sex: Male
  Weight: 72.1 kg

DRUGS (1)
  1. HEPARIN SODIUM [Suspect]

REACTIONS (1)
  - THROMBOCYTOPENIA [None]
